FAERS Safety Report 5165825-6 (Version None)
Quarter: 2006Q4

REPORT INFORMATION
  Report Type: 
  Country: None (occurrence: None)
  Receive Date: 20061128
  Receipt Date: 20061113
  Transmission Date: 20070319
  Serious: Yes (Disabling)
  Sender: FDA-Public Use
  Company Number: 2006BL006397

PATIENT
  Age: 72 Year
  Sex: Male

DRUGS (5)
  1. PREDNISOLONE SODIUM PHOSPHATE [Suspect]
     Indication: KERATITIS HERPETIC
     Dosage: 1 DOSE FORM;
     Dates: start: 20040601
  2. TIMOLOL CHAUVIN 0.50% COLLYRE    (TIMOLOL) [Suspect]
     Indication: KERATITIS HERPETIC
     Dosage: 1 DOSE FORM; TWICE A DAY;
     Dates: start: 20040601
  3. ACYCLOVIR [Concomitant]
  4. DIAMOX #1 [Concomitant]
  5. AUTALOGOUS SERUM [Concomitant]

REACTIONS (2)
  - BLINDNESS [None]
  - CORNEAL DEPOSITS [None]
